FAERS Safety Report 4846076-9 (Version None)
Quarter: 2005Q4

REPORT INFORMATION
  Report Type: 
  Country: None (occurrence: None)
  Receive Date: 20051130
  Receipt Date: 20051117
  Transmission Date: 20060501
  Serious: Yes (Death, Other)
  Sender: FDA-Public Use
  Company Number: 2005US001674

PATIENT
  Age: 66 Year
  Sex: Female

DRUGS (2)
  1. PROGRAF [Suspect]
     Indication: PROPHYLAXIS AGAINST TRANSPLANT REJECTION
  2. MYCOPHENOLATE MOFETIL (MYCOPHENOLATE MOFETIL) [Suspect]
     Indication: RENAL IMPAIRMENT

REACTIONS (4)
  - CARDIAC FAILURE [None]
  - DIALYSIS [None]
  - GASTROINTESTINAL DISORDER [None]
  - RENAL FAILURE CHRONIC [None]
